FAERS Safety Report 6044332-2 (Version None)
Quarter: 2009Q1

REPORT INFORMATION
  Report Type: 
  Country: None (occurrence: None)
  Receive Date: 20090120
  Receipt Date: 20090109
  Transmission Date: 20090719
  Serious: Yes (Death, Life-Threatening, Hospitalization)
  Sender: FDA-Public Use
  Company Number: CH-ROCHE-266686

PATIENT
  Sex: Female

DRUGS (10)
  1. CELLCEPT [Suspect]
     Route: 042
     Dates: start: 20001224, end: 20010118
  2. RECORMON [Suspect]
     Route: 065
     Dates: start: 19950101, end: 20000101
  3. ZENAPAX [Suspect]
     Route: 065
     Dates: start: 20010108, end: 20010118
  4. PROGRAF [Suspect]
     Route: 042
     Dates: start: 20001224, end: 20010118
  5. EPREX [Suspect]
     Route: 065
     Dates: start: 19950101, end: 19950101
  6. EPREX [Suspect]
     Dosage: OVERALL DURATION OF THERAPY REPORTED AS 5 YEARS (JOHNSON + JOHNSON).
     Route: 065
     Dates: start: 20001224, end: 20010118
  7. PREDNISONE [Concomitant]
     Dates: start: 20001224
  8. ATGAM [Concomitant]
     Indication: IMMUNE SYSTEM DISORDER
     Route: 065
  9. MEDROL [Concomitant]
     Indication: IMMUNE SYSTEM DISORDER
  10. ATG FRESENIUS [Concomitant]

REACTIONS (3)
  - APLASIA PURE RED CELL [None]
  - CARDIAC ARREST [None]
  - TRANSPLANT REJECTION [None]
